FAERS Safety Report 6618984-X (Version None)
Quarter: 2010Q1

REPORT INFORMATION
  Report Type: 
  Country: None (occurrence: None)
  Receive Date: 20100308
  Receipt Date: 20100301
  Transmission Date: 20100710
  Serious: Yes (Hospitalization, Other)
  Sender: FDA-Public Use
  Company Number: PHHO2010CZ02519

PATIENT
  Sex: Male
  Weight: 89 kg

DRUGS (3)
  1. CERTICAN [Suspect]
     Indication: LIVER TRANSPLANT
     Dosage: 6 MG / 24 HR
     Route: 048
     Dates: start: 20090701
  2. TACROLIMUS COMP-TAC+ [Suspect]
     Indication: LIVER TRANSPLANT
     Route: 048
  3. PREDNISONE [Concomitant]
     Indication: LIVER TRANSPLANT
     Dosage: 40 MG
     Route: 048
     Dates: start: 20100214

REACTIONS (3)
  - FIBROSIS [None]
  - HEPATIC ENZYME ABNORMAL [None]
  - HEPATITIS [None]
